FAERS Safety Report 20437178 (Version 3)
Quarter: 2022Q3

REPORT INFORMATION
  Report Type: Report from Study
  Country: CA (occurrence: CA)
  Receive Date: 20220207
  Receipt Date: 20220712
  Transmission Date: 20221026
  Serious: Yes (Other)
  Sender: FDA-Public Use
  Company Number: CA-GLAXOSMITHKLINE-CA2022017830

PATIENT

DRUGS (6)
  1. MEPOLIZUMAB [Suspect]
     Active Substance: MEPOLIZUMAB
     Indication: Asthma
     Dosage: 100 MG EVERY 4 WEEKS
     Route: 058
     Dates: start: 20201116
  2. MEPOLIZUMAB [Suspect]
     Active Substance: MEPOLIZUMAB
     Indication: Asthma
     Dosage: 100 MG, Z (EVERY 4 WEEKS)
     Route: 058
  3. COVID-19 VACCINE [Concomitant]
     Indication: Product used for unknown indication
     Dosage: UNK, 1ST DOSE
  4. COVID-19 VACCINE [Concomitant]
     Dosage: UNK, 2ND DOSE
  5. COVID-19 VACCINE [Concomitant]
     Dosage: UNK, 3RD DOSE
     Dates: start: 20220124
  6. COVID-19 VACCINE [Concomitant]
     Dosage: UNK, 4TH DOSE
     Dates: start: 20220424

REACTIONS (2)
  - Pneumonia [Unknown]
  - Uterine leiomyoma [Unknown]
